FAERS Safety Report 8438427 (Version 7)
Quarter: 2013Q2

REPORT INFORMATION
  Report Type: Spontaneous
  Country: US (occurrence: US)
  Receive Date: 20120302
  Receipt Date: 20130423
  Transmission Date: 20140414
  Serious: Yes (Other)
  Sender: FDA-Public Use
  Company Number: US-ASTRAZENECA-2012SE13042

PATIENT
  Age: 40 Year
  Sex: Male

DRUGS (4)
  1. NEXIUM [Suspect]
     Route: 048
  2. NEXIUM [Suspect]
     Route: 048
  3. NEXIUM [Suspect]
     Route: 048
  4. NEXIUM [Suspect]
     Route: 048

REACTIONS (9)
  - Haemoptysis [Unknown]
  - Gastrooesophageal reflux disease [Unknown]
  - Barrett^s oesophagus [Unknown]
  - Oesophageal pain [Unknown]
  - Oesophageal disorder [Unknown]
  - Gastrooesophageal sphincter insufficiency [Unknown]
  - Pain [Unknown]
  - Off label use [Unknown]
  - Drug dose omission [Unknown]
